FAERS Safety Report 17658407 (Version 1)
Quarter: 2020Q2

REPORT INFORMATION
  Report Type: Spontaneous
  Country: GB (occurrence: GB)
  Receive Date: 20200412
  Receipt Date: 20200412
  Transmission Date: 20200713
  Serious: Yes (Other)
  Sender: FDA-Public Use
  Company Number: GB-AUROBINDO-AUR-APL-2020-017339

PATIENT
  Age: 55 Year
  Sex: Female
  Weight: 50 kg

DRUGS (4)
  1. PROGESTERONE. [Concomitant]
     Active Substance: PROGESTERONE
     Indication: PRODUCT USED FOR UNKNOWN INDICATION
     Dosage: UNK (LAST 18 DAYS EACH MONTH)
     Route: 062
  2. METRONIDAZOLE. [Suspect]
     Active Substance: METRONIDAZOLE
     Indication: BACTERIAL VAGINOSIS
     Dosage: 2000 MILLIGRAM, ONCE A DAY (AS ONE DOSE)
     Route: 048
     Dates: start: 20200319, end: 20200319
  3. METRONIDAZOLE FILM COATED TABLETS [Suspect]
     Active Substance: METRONIDAZOLE
     Indication: BACTERIAL VAGINOSIS
     Dosage: 1200 MILLIGRAM, ONCE A DAY (2 TABLETS ON 17.3.20; 3 ON 18.3.20; 2 ON 19.3.20 (ALL EIGHT HOURS APART)
     Route: 048
     Dates: start: 20200317, end: 20200319
  4. IBUPROFEN. [Concomitant]
     Active Substance: IBUPROFEN
     Indication: PRODUCT USED FOR UNKNOWN INDICATION
     Dosage: UNK
     Route: 065

REACTIONS (12)
  - Abdominal distension [Recovering/Resolving]
  - Liver tenderness [Recovering/Resolving]
  - Pollakiuria [Recovered/Resolved]
  - Adnexa uteri pain [Not Recovered/Not Resolved]
  - Breast tenderness [Not Recovered/Not Resolved]
  - Chest discomfort [Not Recovered/Not Resolved]
  - Dysgeusia [Not Recovered/Not Resolved]
  - Blood urine present [Recovered/Resolved]
  - Nausea [Not Recovered/Not Resolved]
  - Chromaturia [Recovered/Resolved]
  - Chest pain [Not Recovered/Not Resolved]
  - Back pain [Not Recovered/Not Resolved]

NARRATIVE: CASE EVENT DATE: 20200318
